FAERS Safety Report 21896567 (Version 6)
Quarter: 2023Q4

REPORT INFORMATION
  Report Type: Report from Study
  Country: US (occurrence: US)
  Receive Date: 20230123
  Receipt Date: 20231117
  Transmission Date: 20240110
  Serious: Yes (Other)
  Sender: FDA-Public Use
  Company Number: US-002147023-NVSC2023US012898

PATIENT
  Age: 68 Year
  Sex: Female

DRUGS (2)
  1. GLEEVEC [Suspect]
     Active Substance: IMATINIB MESYLATE
     Indication: Chronic myeloid leukaemia
     Dosage: UNK
     Route: 065
  2. GLEEVEC [Suspect]
     Active Substance: IMATINIB MESYLATE
     Dosage: 400 MG, QD
     Route: 048

REACTIONS (10)
  - Plasma cell myeloma [Unknown]
  - Neoplasm malignant [Unknown]
  - Deafness [Unknown]
  - Chronic myeloid leukaemia recurrent [Unknown]
  - Second primary malignancy [Unknown]
  - Leukaemia [Unknown]
  - Diarrhoea [Unknown]
  - Confusional state [Unknown]
  - Cardiac disorder [Unknown]
  - Head discomfort [Unknown]

NARRATIVE: CASE EVENT DATE: 20091201
